FAERS Safety Report 10079368 (Version 3)
Quarter: 2014Q2

REPORT INFORMATION
  Report Type: Spontaneous
  Country: JP (occurrence: JP)
  Receive Date: 20140415
  Receipt Date: 20140508
  Transmission Date: 20141212
  Serious: Yes (Hospitalization, Other)
  Sender: FDA-Public Use
  Company Number: PHHY2014JP041242

PATIENT
  Age: 33 Year
  Sex: Male

DRUGS (5)
  1. CLOZARIL [Suspect]
     Indication: SCHIZOPHRENIA
     Dosage: 12.5 MG, DAILY
     Route: 048
     Dates: start: 20140305
  2. CLOZARIL [Suspect]
     Dosage: 25 MG, DAILY
     Route: 048
  3. LIMAS [Suspect]
     Route: 048
  4. FLOMOX [Suspect]
     Route: 048
  5. LOXONIN [Suspect]

REACTIONS (4)
  - Renal failure acute [Recovered/Resolved]
  - Pyelonephritis [Unknown]
  - Urinary retention [Unknown]
  - Pyrexia [Recovered/Resolved]
